FAERS Safety Report 5691005-1 (Version None)
Quarter: 2008Q2

REPORT INFORMATION
  Report Type: 
  Country: None (occurrence: None)
  Receive Date: 20080401
  Receipt Date: 20080318
  Transmission Date: 20081010
  Serious: Yes (Other)
  Sender: FDA-Public Use
  Company Number: US-PFIZER INC-2007065483

PATIENT
  Sex: Male
  Weight: 81.6 kg

DRUGS (9)
  1. SUTENT [Suspect]
     Indication: RENAL CELL CARCINOMA
     Route: 048
  2. SYNTHROID [Concomitant]
  3. RESTORIL [Concomitant]
  4. VERAPAMIL [Concomitant]
  5. LEXAPRO [Concomitant]
  6. TRAMADOL HCL [Concomitant]
  7. FUROSEMIDE [Concomitant]
  8. POTASSIUM CHLORIDE [Concomitant]
  9. ATIVAN [Concomitant]

REACTIONS (1)
  - PLEURAL EFFUSION [None]
